FAERS Safety Report 25928298 (Version 1)
Quarter: 2025Q4

REPORT INFORMATION
  Report Type: Spontaneous
  Country: CA (occurrence: CA)
  Receive Date: 20251016
  Receipt Date: 20251016
  Transmission Date: 20260118
  Serious: Yes (Other)
  Sender: Onesource Specialty Pharma
  Company Number: CA-STRIDES ARCOLAB LIMITED-2025OS000951

PATIENT
  Age: 2 Year

DRUGS (9)
  1. ETOPOSIDE [Suspect]
     Active Substance: ETOPOSIDE
     Indication: Rhabdomyosarcoma
     Dosage: ADJUVANT CHEMOTHERAPY; 12 CYCLES
     Route: 065
  2. VINCRISTINE [Suspect]
     Active Substance: VINCRISTINE
     Indication: Rhabdomyosarcoma
     Dosage: NEOADJUVANT CHEMOTHERAPY; 4 CYCLES
     Route: 065
  3. VINCRISTINE [Suspect]
     Active Substance: VINCRISTINE
     Dosage: ADJUVANT CHEMOTHERAPY; 12 CYCLES
     Route: 065
  4. DOXORUBICIN [Suspect]
     Active Substance: DOXORUBICIN
     Indication: Rhabdomyosarcoma
     Dosage: NEOADJUVANT CHEMOTHERAPY; 4 CYCLES
     Route: 065
  5. DOXORUBICIN [Suspect]
     Active Substance: DOXORUBICIN
     Dosage: ADJUVANT CHEMOTHERAPY; 12 CYCLES
     Route: 065
  6. CYCLOPHOSPHAMIDE [Suspect]
     Active Substance: CYCLOPHOSPHAMIDE
     Indication: Rhabdomyosarcoma
     Dosage: NEOADJUVANT CHEMOTHERAPY; 4 CYCLES
     Route: 065
  7. CYCLOPHOSPHAMIDE [Suspect]
     Active Substance: CYCLOPHOSPHAMIDE
     Dosage: ADJUVANT CHEMOTHERAPY; 12 CYCLES
     Route: 065
  8. IRINOTECAN [Suspect]
     Active Substance: IRINOTECAN
     Indication: Rhabdomyosarcoma
     Dosage: NEOADJUVANT CHEMOTHERAPY; 4 CYCLES
     Route: 065
  9. IFOSFAMIDE [Suspect]
     Active Substance: IFOSFAMIDE
     Indication: Rhabdomyosarcoma
     Dosage: ADJUVANT CHEMOTHERAPY; 12 CYCLES
     Route: 065

REACTIONS (2)
  - Metastatic neoplasm [Unknown]
  - Drug ineffective for unapproved indication [Unknown]
